FAERS Safety Report 10174990 (Version 1)
Quarter: 2014Q2

REPORT INFORMATION
  Report Type: Spontaneous
  Country: US (occurrence: US)
  Receive Date: 20140515
  Receipt Date: 20140515
  Transmission Date: 20141212
  Serious: Yes (Hospitalization)
  Sender: FDA-Public Use
  Company Number: US-LUNDBECK-DKLU1099898

PATIENT
  Age: 4 Year
  Sex: Female

DRUGS (6)
  1. SABRIL     (TABLET) [Suspect]
     Indication: EPILEPSY
     Dates: start: 20130510
  2. SABRIL     (TABLET) [Suspect]
     Indication: EPILEPSY
     Dates: start: 20130510
  3. SABRIL     (TABLET) [Suspect]
     Indication: TUBEROUS SCLEROSIS
  4. DEPAKOTE [Concomitant]
     Indication: PRODUCT USED FOR UNKNOWN INDICATION
  5. LEVETIRACETAM [Concomitant]
     Indication: PRODUCT USED FOR UNKNOWN INDICATION
  6. CLONAZEPAM [Concomitant]
     Indication: PRODUCT USED FOR UNKNOWN INDICATION

REACTIONS (1)
  - Brain operation [Recovered/Resolved]
